FAERS Safety Report 17830938 (Version 1)
Quarter: 2020Q2

REPORT INFORMATION
  Report Type: Spontaneous
  Country: US (occurrence: US)
  Receive Date: 20200527
  Receipt Date: 20200527
  Transmission Date: 20200714
  Serious: No
  Sender: FDA-Public Use
  Company Number: US-THERAPEUTICSMD-2020TMD00907

PATIENT
  Sex: Female
  Weight: 59.86 kg

DRUGS (1)
  1. ANNOVERA [Suspect]
     Active Substance: ETHINYL ESTRADIOL\SEGESTERONE ACETATE
     Indication: CONTRACEPTION
     Dosage: 0.013-0.15 MG/24HR, ONCE
     Route: 067
     Dates: start: 20191201, end: 20200131

REACTIONS (2)
  - Mood altered [Unknown]
  - Depression [Unknown]
